FAERS Safety Report 4576726-6 (Version None)
Quarter: 2005Q1

REPORT INFORMATION
  Report Type: 
  Country: None (occurrence: None)
  Receive Date: 20050207
  Receipt Date: 20050124
  Transmission Date: 20050727
  Serious: Yes (Hospitalization, Other)
  Sender: FDA-Public Use
  Company Number: 2005018897

PATIENT
  Age: 57 Year
  Sex: Female
  Weight: 112.4921 kg

DRUGS (17)
  1. DETROL LA [Suspect]
     Indication: DYSURIA
     Dosage: 4 MG (2 MG, BID), ORAL
     Route: 048
     Dates: start: 19980101, end: 20050116
  2. DETROL LA [Suspect]
     Indication: DYSURIA
     Dosage: 4 MG (2 MG, DAILY), ORAL
     Route: 048
     Dates: start: 20050117
  3. FUROSEMIDE [Concomitant]
  4. POTASSIUM CHLORIDE [Concomitant]
  5. CONJUGATED ESTROGENS [Concomitant]
  6. LEVOTHYROXINE SODIUM [Concomitant]
  7. FEXOFENADINE HYDROCHLORIDE [Concomitant]
  8. FLUTICASONE PROPIONATE [Concomitant]
  9. BROMOCRIPTINE MESYLATE [Concomitant]
  10. PIOGLITAZONE HCL [Concomitant]
  11. ATORVASTATIN (ATORVASTATIN) [Concomitant]
  12. DESONIDE [Concomitant]
  13. ZOLPIDEM TARTRATE [Concomitant]
  14. TRAZODONE (TRAZODONE) [Concomitant]
  15. SERTRALINE HCL [Concomitant]
  16. GABAPENTIN [Concomitant]
  17. ALL OTHER NON-THERAPEUTIC PRODUCTS (ALL OTHER NON-THERAPEUTIC PRODUCTS [Concomitant]

REACTIONS (7)
  - CATHETERISATION CARDIAC [None]
  - DYSURIA [None]
  - RECTOCELE [None]
  - SEPTOPLASTY [None]
  - SPINAL OPERATION [None]
  - STAPHYLOCOCCAL INFECTION [None]
  - URETHRAL PAIN [None]
